FAERS Safety Report 8200092-8 (Version None)
Quarter: 2012Q1

REPORT INFORMATION
  Report Type: 
  Country: None (occurrence: None)
  Receive Date: 20120309
  Receipt Date: 20120309
  Transmission Date: 20120608
  Serious: No
  Sender: FDA-Public Use
  Company Number: None

PATIENT
  Age: 44 Year
  Sex: Female

DRUGS (10)
  1. LISINOPRIL [Suspect]
     Dates: start: 20081219, end: 20090715
  2. ACETYLCYSTEINE [Concomitant]
  3. CIPRO [Concomitant]
  4. VITAMIN K TAB [Concomitant]
  5. AMBIEN [Concomitant]
  6. TOPAMAX [Concomitant]
  7. SLIDING SCALE INSULIN [Concomitant]
  8. LIPITOR [Suspect]
     Dates: start: 20081219, end: 20090715
  9. GLUCOPHAGE [Concomitant]
  10. PROTONIX [Concomitant]

REACTIONS (4)
  - BACK PAIN [None]
  - AUTOIMMUNE HEPATITIS [None]
  - SERUM FERRITIN INCREASED [None]
  - LIVER DISORDER [None]
